FAERS Safety Report 22246719 (Version 2)
Quarter: 2023Q4

REPORT INFORMATION
  Report Type: Spontaneous
  Country: US (occurrence: US)
  Receive Date: 20230424
  Receipt Date: 20231002
  Transmission Date: 20240110
  Serious: No
  Sender: FDA-Public Use
  Company Number: US-ALXN-A202305390

PATIENT
  Age: 18 Year
  Sex: Female

DRUGS (1)
  1. STRENSIQ [Suspect]
     Active Substance: ASFOTASE ALFA
     Indication: Hypophosphatasia
     Dosage: 4 SHOTS, Q3W
     Route: 065
     Dates: start: 202212

REACTIONS (2)
  - Injection site nodule [Unknown]
  - Injection site pain [Unknown]
